FAERS Safety Report 14222402 (Version 1)
Quarter: 2017Q4

REPORT INFORMATION
  Report Type: Report from Study
  Country: None (occurrence: CA)
  Receive Date: 20171124
  Receipt Date: 20171124
  Transmission Date: 20180321
  Serious: Yes (Other)
  Sender: FDA-Public Use
  Company Number: CA-ABBVIE-16P-028-1747418-00

PATIENT
  Sex: Female

DRUGS (2)
  1. HUMIRA [Suspect]
     Active Substance: ADALIMUMAB
     Indication: CROHN^S DISEASE
     Route: 058
     Dates: start: 20130510, end: 2017
  2. HUMIRA [Suspect]
     Active Substance: ADALIMUMAB
     Route: 058
     Dates: start: 20170714

REACTIONS (9)
  - Gingivitis [Not Recovered/Not Resolved]
  - Eye infection [Not Recovered/Not Resolved]
  - Upper limb fracture [Unknown]
  - Post procedural infection [Not Recovered/Not Resolved]
  - Pathological fracture [Unknown]
  - Osteonecrosis [Unknown]
  - Joint swelling [Not Recovered/Not Resolved]
  - Ear infection [Not Recovered/Not Resolved]
  - Sinusitis [Not Recovered/Not Resolved]

NARRATIVE: CASE EVENT DATE: 2016
